FAERS Safety Report 9900821 (Version 2)
Quarter: 2015Q2

REPORT INFORMATION
  Report Type: Spontaneous
  Country: GB (occurrence: GB)
  Receive Date: 20140217
  Receipt Date: 20150407
  Transmission Date: 20150821
  Serious: Yes (Death, Other)
  Sender: FDA-Public Use
  Company Number: GB-RANBAXY-2014R1-77963

PATIENT
  Sex: Male

DRUGS (2)
  1. DOXYCYCLINE. [Suspect]
     Active Substance: DOXYCYCLINE
     Indication: PRODUCT USED FOR UNKNOWN INDICATION
     Dosage: 50 MG, DAILY
     Route: 065
     Dates: end: 201108
  2. DOXYCYCLINE. [Suspect]
     Active Substance: DOXYCYCLINE
     Indication: ACNE
     Dosage: DISPENSED 100 MG MEDICATION IN 50 MG PACKAGING
     Route: 065
     Dates: start: 201202

REACTIONS (4)
  - Drug dispensing error [Unknown]
  - Completed suicide [Fatal]
  - Mood altered [Recovering/Resolving]
  - Mood altered [Not Recovered/Not Resolved]
